FAERS Safety Report 20246133 (Version 1)
Quarter: 2021Q4

REPORT INFORMATION
  Report Type: Spontaneous
  Country: US (occurrence: None)
  Receive Date: 20211228
  Receipt Date: 20211228
  Transmission Date: 20220303
  Serious: Yes (Hospitalization)
  Sender: FDA-Public Use
  Company Number: None

PATIENT
  Age: 79 Year
  Sex: Male

DRUGS (1)
  1. CASIRIVIMAB\IMDEVIMAB [Suspect]
     Active Substance: CASIRIVIMAB\IMDEVIMAB
     Indication: COVID-19
     Route: 058
     Dates: start: 20211215, end: 20211215

REACTIONS (11)
  - Acute respiratory failure [None]
  - COVID-19 pneumonia [None]
  - Respiratory distress [None]
  - Rhabdomyolysis [None]
  - Peripheral artery occlusion [None]
  - Arteriosclerosis [None]
  - Peripheral artery stenosis [None]
  - Peripheral artery occlusion [None]
  - Metabolic encephalopathy [None]
  - Peripheral ischaemia [None]
  - Blood glucose increased [None]

NARRATIVE: CASE EVENT DATE: 20211219
